FAERS Safety Report 8399194-5 (Version None)
Quarter: 2012Q2

REPORT INFORMATION
  Report Type: 
  Country: None (occurrence: None)
  Receive Date: 20120531
  Receipt Date: 20120524
  Transmission Date: 20120825
  Serious: Yes (Hospitalization)
  Sender: FDA-Public Use
  Company Number: US-GLAXOSMITHKLINE-A0882166A

PATIENT
  Age: 51 Year
  Sex: Male
  Weight: 76.8 kg

DRUGS (1)
  1. AVANDIA [Suspect]
     Indication: TYPE 2 DIABETES MELLITUS
     Dosage: 2MG TWICE PER DAY
     Route: 048
     Dates: start: 20070101, end: 20070805

REACTIONS (2)
  - MYOCARDIAL INFARCTION [None]
  - CARDIAC ASSISTANCE DEVICE USER [None]
